FAERS Safety Report 5126899-1 (Version None)
Quarter: 2006Q3

REPORT INFORMATION
  Report Type: 
  Country: None (occurrence: None)
  Receive Date: 20060828
  Receipt Date: 20050627
  Transmission Date: 20061208
  Serious: Yes (Other)
  Sender: FDA-Public Use
  Company Number: 244097

PATIENT
  Age: 49 Year
  Sex: Female

DRUGS (1)
  1. VAGIFEM [Suspect]
     Indication: ATROPHIC VULVOVAGINITIS
     Dosage: 1 TAB, BLW, VAGINAL
     Route: 067
     Dates: start: 20050426

REACTIONS (1)
  - URTICARIA [None]
